FAERS Safety Report 6147139-0 (Version None)
Quarter: 2009Q2

REPORT INFORMATION
  Report Type: 
  Country: None (occurrence: None)
  Receive Date: 20090406
  Receipt Date: 20090331
  Transmission Date: 20091009
  Serious: Yes (Other)
  Sender: FDA-Public Use
  Company Number: 231473

PATIENT
  Age: 22 Year
  Sex: Male
  Weight: 80.2 kg

DRUGS (4)
  1. PRECEDEX [Suspect]
     Indication: SEDATIVE THERAPY
     Dosage: 200 MCG, INTRAVENOUS DRIP
     Route: 041
  2. FENTANYL [Concomitant]
  3. PROPOFOL [Concomitant]
  4. SODIUM CHLORIDE [Concomitant]

REACTIONS (5)
  - BLOOD PRESSURE INCREASED [None]
  - HEART RATE INCREASED [None]
  - PRURITUS [None]
  - RASH [None]
  - URTICARIA [None]
